FAERS Safety Report 6640062-4 (Version None)
Quarter: 2010Q1

REPORT INFORMATION
  Report Type: 
  Country: None (occurrence: None)
  Receive Date: 20100318
  Receipt Date: 20100311
  Transmission Date: 20100710
  Serious: Yes (Other)
  Sender: FDA-Public Use
  Company Number: US-SANOFI-AVENTIS-2010SA015029

PATIENT
  Sex: Male

DRUGS (2)
  1. CLOPIDOGREL BISULFATE [Suspect]
     Route: 065
  2. ASPIRIN [Suspect]
     Route: 065

REACTIONS (2)
  - CEREBRAL HAEMORRHAGE [None]
  - METASTATIC NEOPLASM [None]
